FAERS Safety Report 10642985 (Version 1)
Quarter: 2014Q4

REPORT INFORMATION
  Report Type: Spontaneous
  Country: US (occurrence: None)
  Receive Date: 20141209
  Receipt Date: 20141209
  Transmission Date: 20150529
  Serious: Yes (Life-Threatening)
  Sender: FDA-Public Use
  Company Number: None

PATIENT
  Age: 58 Year
  Sex: Female
  Weight: 60.33 kg

DRUGS (2)
  1. LAMOTRIGINE. [Suspect]
     Active Substance: LAMOTRIGINE
     Indication: MAJOR DEPRESSION
     Dosage: 2 PILLS 100MG AM 150MG PM
     Route: 048
     Dates: start: 20141124, end: 20141202
  2. DULOXETINE 60 MG [Suspect]
     Active Substance: DULOXETINE
     Indication: MAJOR DEPRESSION
     Dosage: 1 PILL ONCE DAILY
     Route: 048
     Dates: start: 20141124, end: 20141202

REACTIONS (7)
  - Social avoidant behaviour [None]
  - Decreased activity [None]
  - Malaise [None]
  - Depression [None]
  - Suicidal ideation [None]
  - Product substitution issue [None]
  - Anxiety [None]

NARRATIVE: CASE EVENT DATE: 20141202
